FAERS Safety Report 12223666 (Version 2)
Quarter: 2016Q4

REPORT INFORMATION
  Report Type: Spontaneous
  Country: GB (occurrence: GB)
  Receive Date: 20160330
  Receipt Date: 20161207
  Transmission Date: 20170207
  Serious: Yes (Other)
  Sender: FDA-Public Use
  Company Number: GB-MYLANLABS-2016M1012554

PATIENT

DRUGS (10)
  1. SIMVASTATIN. [Suspect]
     Active Substance: SIMVASTATIN
     Dosage: 20 MG, UNK
     Route: 048
     Dates: start: 201205, end: 201601
  2. ASPIRIN                            /00002701/ [Concomitant]
     Active Substance: ASPIRIN
     Indication: PRODUCT USED FOR UNKNOWN INDICATION
     Dosage: 75 MG, UNK
  3. SIMVASTATIN. [Suspect]
     Active Substance: SIMVASTATIN
     Dosage: 80 MG, UNK
     Route: 048
     Dates: start: 201011, end: 201108
  4. SIMVASTATIN. [Suspect]
     Active Substance: SIMVASTATIN
     Dosage: 10 MG, UNK
     Route: 048
     Dates: start: 2009, end: 200909
  5. SIMVASTATIN. [Suspect]
     Active Substance: SIMVASTATIN
     Dosage: 10 MG, UNK
     Route: 048
     Dates: start: 201503, end: 201510
  6. BISOPROLOL FUMARATE. [Concomitant]
     Active Substance: BISOPROLOL FUMARATE
     Indication: PRODUCT USED FOR UNKNOWN INDICATION
     Dosage: 2.5 MG, UNK
  7. SIMVASTATIN. [Suspect]
     Active Substance: SIMVASTATIN
     Dosage: 40 MG, UNK
     Route: 048
     Dates: start: 20111023, end: 20160308
  8. NATRILIX                           /00340101/ [Concomitant]
     Active Substance: INDAPAMIDE
     Indication: PRODUCT USED FOR UNKNOWN INDICATION
     Dosage: 2.5 MG, UNK
  9. RAMIPRIL TEVA [Concomitant]
     Active Substance: RAMIPRIL
     Indication: PRODUCT USED FOR UNKNOWN INDICATION
     Dosage: 5 MG, UNK
  10. SIMVASTATIN. [Suspect]
     Active Substance: SIMVASTATIN
     Indication: BLOOD CHOLESTEROL INCREASED
     Dosage: 10 MG, UNK
     Route: 048
     Dates: start: 2003, end: 2005

REACTIONS (8)
  - Abnormal behaviour [Unknown]
  - Coordination abnormal [Unknown]
  - Depression [Unknown]
  - Irritability [Unknown]
  - Disturbance in attention [Recovering/Resolving]
  - Musculoskeletal disorder [Unknown]
  - Nervousness [Unknown]
  - Cognitive disorder [Recovering/Resolving]

NARRATIVE: CASE EVENT DATE: 201001
